FAERS Safety Report 6870246-1 (Version None)
Quarter: 2010Q3

REPORT INFORMATION
  Report Type: 
  Country: None (occurrence: None)
  Receive Date: 20100723
  Receipt Date: 20100714
  Transmission Date: 20110219
  Serious: No
  Sender: FDA-Public Use
  Company Number: US-BIOGENIDEC-2009BI042072

PATIENT
  Age: 34 Year
  Sex: Male

DRUGS (1)
  1. TYSABRI [Suspect]
     Indication: MULTIPLE SCLEROSIS
     Route: 042
     Dates: start: 20090826

REACTIONS (6)
  - FALL [None]
  - FRACTURED COCCYX [None]
  - GAIT DISTURBANCE [None]
  - MOBILITY DECREASED [None]
  - MUSCULAR WEAKNESS [None]
  - SKELETAL INJURY [None]
